FAERS Safety Report 7763125 (Version 4)
Quarter: 2014Q1

REPORT INFORMATION
  Report Type: Spontaneous
  Country: US (occurrence: US)
  Receive Date: 20110118
  Receipt Date: 20140206
  Transmission Date: 20141002
  Serious: Yes (Hospitalization, Other)
  Sender: FDA-Public Use
  Company Number: US-BAYER-2011-005051

PATIENT
  Age: 17 Year
  Sex: Female
  Weight: 48 kg

DRUGS (11)
  1. YAZ [Suspect]
     Dosage: UNK
     Dates: start: 20071221, end: 200805
  2. IBUPROFEN [Concomitant]
     Dosage: UNK
  3. NAPROXEN SODIUM + PSEUDOEPHEDRINE [Concomitant]
  4. METHYLPREDNISOLONE [Concomitant]
  5. OXYCODONE [Concomitant]
  6. HYDROCODONE W/APAP [Concomitant]
     Indication: PAIN
     Dosage: 5/325 [AS WRITTEN] ONE TO TWO Q. 4 HOURS P.R.N.
     Route: 048
  7. MULTIVITAMIN [Concomitant]
     Dosage: UNK
  8. IRON [Concomitant]
  9. LORTAB [Concomitant]
     Dosage: TWP 5/500
  10. DARVOCET-N [Concomitant]
     Indication: PAIN
     Dosage: 100 ONE Q.6H P.R.N.
     Route: 048
  11. PHENERGAN [Concomitant]
     Indication: NAUSEA
     Dosage: 25-MG ONE SUPPOSITORIES Q.6H P.R.N.,

REACTIONS (7)
  - Gallbladder disorder [None]
  - Cholecystitis chronic [None]
  - Injury [None]
  - Pain [None]
  - Emotional distress [None]
  - Depressed mood [None]
  - Anxiety [None]
